FAERS Safety Report 19530700 (Version 1)
Quarter: 2021Q3

REPORT INFORMATION
  Report Type: Spontaneous
  Country: US (occurrence: US)
  Receive Date: 20210713
  Receipt Date: 20210713
  Transmission Date: 20211014
  Serious: Yes (Death, Life-Threatening, Hospitalization, Other)
  Sender: FDA-Public Use
  Company Number: US-HIKMA PHARMACEUTICALS USA INC.-US-H14001-21-54830

PATIENT
  Age: 68 Year
  Sex: Male

DRUGS (3)
  1. AZATHIOPRINE. [Suspect]
     Active Substance: AZATHIOPRINE
     Indication: GRANULOMATOSIS WITH POLYANGIITIS
     Dosage: UNKNOWN
     Route: 065
  2. PREDNISONE. [Suspect]
     Active Substance: PREDNISONE
     Indication: GRANULOMATOSIS WITH POLYANGIITIS
     Dosage: UNKNOWN
     Route: 065
  3. BACTRIM [Suspect]
     Active Substance: SULFAMETHOXAZOLE\TRIMETHOPRIM
     Indication: PNEUMOCYSTIS JIROVECII PNEUMONIA
     Dosage: UNKNOWN
     Route: 065

REACTIONS (18)
  - Aortic valve incompetence [Fatal]
  - Cardiac arrest [Fatal]
  - Ventricular fibrillation [Fatal]
  - Disseminated trichosporonosis [Fatal]
  - Coronary artery occlusion [Fatal]
  - Cardiogenic shock [Fatal]
  - Lymphopenia [Unknown]
  - Cytopenia [Unknown]
  - Papillary muscle rupture [Fatal]
  - Infarction [Fatal]
  - Encephalitis [Fatal]
  - Thrombocytopenia [Unknown]
  - Fungal endocarditis [Fatal]
  - Cardiac ventricular thrombosis [Fatal]
  - Cardiomyopathy [Fatal]
  - Anaemia [Unknown]
  - Mediastinal haemorrhage [Fatal]
  - Neutropenia [Unknown]
